FAERS Safety Report 14084694 (Version 6)
Quarter: 2017Q4

REPORT INFORMATION
  Report Type: Report from Study
  Country: US (occurrence: US)
  Receive Date: 20171013
  Receipt Date: 20171204
  Transmission Date: 20180321
  Serious: Yes (Other)
  Sender: FDA-Public Use
  Company Number: PHEH2017US033094

PATIENT
  Sex: Female

DRUGS (1)
  1. TRAVATAN Z [Suspect]
     Active Substance: TRAVOPROST
     Indication: GLAUCOMA
     Dosage: UNK, QD
     Route: 061
     Dates: start: 2010

REACTIONS (6)
  - Back pain [Unknown]
  - Ocular hyperaemia [Unknown]
  - Eye pain [Unknown]
  - Spinal fracture [Unknown]
  - Dry eye [Unknown]
  - Headache [Unknown]
